FAERS Safety Report 19684277 (Version 2)
Quarter: 2021Q4

REPORT INFORMATION
  Report Type: Spontaneous
  Country: JP (occurrence: JP)
  Receive Date: 20210811
  Receipt Date: 20211005
  Transmission Date: 20220303
  Serious: Yes (Other)
  Sender: FDA-Public Use
  Company Number: NVSJ2021JP011889

PATIENT
  Age: 47 Year
  Sex: Male

DRUGS (1)
  1. GLIVEC [Suspect]
     Active Substance: IMATINIB MESYLATE
     Indication: Gastrointestinal stromal tumour
     Dosage: UNK
     Route: 065

REACTIONS (4)
  - Tumour necrosis [Unknown]
  - Pyrexia [Unknown]
  - Infected neoplasm [Unknown]
  - Metastases to diaphragm [Unknown]
